FAERS Safety Report 8187079 (Version 3)
Quarter: 2013Q2

REPORT INFORMATION
  Report Type: Spontaneous
  Country: US (occurrence: US)
  Receive Date: 20111018
  Receipt Date: 20130501
  Transmission Date: 20140414
  Serious: Yes (Hospitalization)
  Sender: FDA-Public Use
  Company Number: US-ASTRAZENECA-2011SE39316

PATIENT
  Age: 38 Year
  Sex: Female

DRUGS (1)
  1. SYMBICORT PMDI [Suspect]
     Dosage: 160/4.5 MCG, FREQUENCY UNKNOWN
     Route: 055

REACTIONS (7)
  - Pneumonia [Unknown]
  - Wheezing [Unknown]
  - Nasopharyngitis [Unknown]
  - Influenza [Unknown]
  - Upper respiratory tract infection [Unknown]
  - Malaise [Unknown]
  - Drug dose omission [Unknown]
